FAERS Safety Report 7886884-3 (Version None)
Quarter: 2011Q4

REPORT INFORMATION
  Report Type: 
  Country: None (occurrence: None)
  Receive Date: 20111102
  Receipt Date: 20110712
  Transmission Date: 20120403
  Serious: Yes (Other)
  Sender: FDA-Public Use
  Company Number: US-AMGEN-USASP2011035442

PATIENT
  Age: 22 Year
  Sex: Female

DRUGS (1)
  1. ENBREL [Suspect]
     Indication: JUVENILE ARTHRITIS
     Dosage: 50 MG, UNK
     Dates: start: 20110705

REACTIONS (5)
  - CHEST PAIN [None]
  - NAUSEA [None]
  - HEADACHE [None]
  - AUTOIMMUNE HEPATITIS [None]
  - HOT FLUSH [None]
